FAERS Safety Report 6662932-3 (Version None)
Quarter: 2010Q2

REPORT INFORMATION
  Report Type: 
  Country: None (occurrence: None)
  Receive Date: 20100401
  Receipt Date: 20100318
  Transmission Date: 20101027
  Serious: Yes (Other)
  Sender: FDA-Public Use
  Company Number: IL-RANBAXY-2010RR-32764

PATIENT
  Age: 78 Year
  Sex: Male

DRUGS (4)
  1. SIMVASTATIN [Suspect]
  2. VASCASE PLUS [Concomitant]
  3. FOSALAN [Concomitant]
  4. AMLODIPINE [Concomitant]

REACTIONS (4)
  - DERMATITIS BULLOUS [None]
  - PEMPHIGOID [None]
  - PRURITUS GENERALISED [None]
  - RASH PAPULAR [None]
